FAERS Safety Report 4824461-9 (Version None)
Quarter: 2005Q4

REPORT INFORMATION
  Report Type: 
  Country: None (occurrence: None)
  Receive Date: 20051108
  Receipt Date: 20051027
  Transmission Date: 20060501
  Serious: Yes (Hospitalization)
  Sender: FDA-Public Use
  Company Number: DE_051017358

PATIENT
  Age: 29 Year
  Sex: Female

DRUGS (1)
  1. ZYPREXA [Suspect]
     Indication: PSYCHOTIC DISORDER
     Dates: end: 20051024

REACTIONS (7)
  - ALANINE AMINOTRANSFERASE INCREASED [None]
  - BLOOD CHOLESTEROL INCREASED [None]
  - BLOOD TRIGLYCERIDES INCREASED [None]
  - BUNDLE BRANCH BLOCK LEFT [None]
  - GAMMA-GLUTAMYLTRANSFERASE INCREASED [None]
  - GLUCOSE TOLERANCE TEST ABNORMAL [None]
  - SILENT MYOCARDIAL INFARCTION [None]
